FAERS Safety Report 7125814-9 (Version None)
Quarter: 2010Q4

REPORT INFORMATION
  Report Type: 
  Country: None (occurrence: None)
  Receive Date: 20101129
  Receipt Date: 20101122
  Transmission Date: 20110411
  Serious: Yes (Hospitalization)
  Sender: FDA-Public Use
  Company Number: B0686444A

PATIENT
  Sex: Female

DRUGS (2)
  1. AUGMENTIN [Suspect]
     Indication: PHARYNGITIS
     Dosage: 2G PER DAY
     Route: 065
     Dates: start: 20101026, end: 20101029
  2. OKI [Concomitant]
     Route: 048

REACTIONS (5)
  - ERYTHEMA [None]
  - PRURITUS [None]
  - RASH MACULO-PAPULAR [None]
  - RHABDOMYOLYSIS [None]
  - URTICARIA [None]
